FAERS Safety Report 20173093 (Version 4)
Quarter: 2022Q4

REPORT INFORMATION
  Report Type: Spontaneous
  Country: DE (occurrence: DE)
  Receive Date: 20211211
  Receipt Date: 20221120
  Transmission Date: 20230112
  Serious: Yes (Other)
  Sender: FDA-Public Use
  Company Number: DE-NOVARTISPH-NVSC2021DE281189

PATIENT
  Age: 66 Year
  Sex: Male
  Weight: 90 kg

DRUGS (8)
  1. DEXAMETHASONE [Suspect]
     Active Substance: DEXAMETHASONE
     Indication: Plasma cell myeloma
     Dosage: 40 MG
     Route: 065
     Dates: start: 20211005, end: 20220118
  2. DEXAMETHASONE [Suspect]
     Active Substance: DEXAMETHASONE
     Dosage: 40 MG (DATE OF LAST APPLICATION PRIOR EVENT: 11 MAY 2022)
     Route: 065
     Dates: start: 20220406
  3. CARFILZOMIB [Suspect]
     Active Substance: CARFILZOMIB
     Indication: Plasma cell myeloma
     Dosage: 56 MG
     Route: 065
     Dates: start: 20211005, end: 20220112
  4. CARFILZOMIB [Suspect]
     Active Substance: CARFILZOMIB
     Dosage: 58 MG (DATE OF LAST APPLICATION PRIOR EVENT: 11 MAY 2022)
     Route: 065
     Dates: start: 20220406
  5. REVLIMID [Suspect]
     Active Substance: LENALIDOMIDE
     Indication: Plasma cell myeloma
     Dosage: 25 MG
     Route: 048
     Dates: start: 20211005, end: 20220117
  6. REVLIMID [Suspect]
     Active Substance: LENALIDOMIDE
     Dosage: 25 MG
     Route: 048
     Dates: start: 20211108
  7. REVLIMID [Suspect]
     Active Substance: LENALIDOMIDE
     Dosage: 25 MG (DATE OF LAST APPLICATION PRIOR EVENT: 11 MAY 2022)
     Route: 065
     Dates: start: 20220406, end: 20220519
  8. REVLIMID [Suspect]
     Active Substance: LENALIDOMIDE
     Dosage: 10 MG (DATE OF LAST APPLICATION PRIOR EVENT: 06 JUL 2022)
     Route: 065
     Dates: start: 20220601

REACTIONS (3)
  - Neuropathy peripheral [Recovered/Resolved]
  - Polyneuropathy [Recovered/Resolved]
  - Rash [Recovered/Resolved]

NARRATIVE: CASE EVENT DATE: 20211109
